FAERS Safety Report 19197079 (Version 3)
Quarter: 2021Q3

REPORT INFORMATION
  Report Type: Spontaneous
  Country: US (occurrence: US)
  Receive Date: 20210430
  Receipt Date: 20210729
  Transmission Date: 20211014
  Serious: Yes (Disabling)
  Sender: FDA-Public Use
  Company Number: US-SA-2021SA141166

PATIENT
  Sex: Male

DRUGS (2)
  1. DUPIXENT [Suspect]
     Active Substance: DUPILUMAB
     Indication: DERMATITIS ATOPIC
     Dosage: UNK
  2. DUPIXENT [Suspect]
     Active Substance: DUPILUMAB
     Dosage: 300 MG, QOW
     Route: 058
     Dates: start: 20210301

REACTIONS (5)
  - Injection site haemorrhage [Unknown]
  - Adverse drug reaction [Unknown]
  - Muscle injury [Unknown]
  - Skin injury [Unknown]
  - Impaired work ability [Unknown]

NARRATIVE: CASE EVENT DATE: 2021
